FAERS Safety Report 13975750 (Version 2)
Quarter: 2017Q4

REPORT INFORMATION
  Report Type: Spontaneous
  Country: GB (occurrence: GB)
  Receive Date: 20170915
  Receipt Date: 20171004
  Transmission Date: 20180321
  Serious: Yes (Other)
  Sender: FDA-Public Use
  Company Number: GB-BAUSCH-BL-2017-027198

PATIENT
  Age: 44 Year
  Sex: Female

DRUGS (2)
  1. METRONIDAZOLE. [Suspect]
     Active Substance: METRONIDAZOLE
     Indication: DENTAL DISORDER PROPHYLAXIS
     Dosage: THERAPY DURATION: FEW DAY
     Route: 065
     Dates: start: 2017, end: 2017
  2. PREDNISOLONE. [Concomitant]
     Active Substance: PREDNISOLONE
     Indication: PRODUCT USED FOR UNKNOWN INDICATION

REACTIONS (7)
  - Dysphonia [Recovering/Resolving]
  - Asthma [Recovering/Resolving]
  - Lip swelling [Recovering/Resolving]
  - Wound secretion [Recovering/Resolving]
  - Mucosal dryness [Recovering/Resolving]
  - Skin wrinkling [Recovering/Resolving]
  - Lip injury [Recovering/Resolving]

NARRATIVE: CASE EVENT DATE: 2017
